FAERS Safety Report 6638873-4 (Version None)
Quarter: 2010Q1

REPORT INFORMATION
  Report Type: 
  Country: None (occurrence: None)
  Receive Date: 20100317
  Receipt Date: 20100308
  Transmission Date: 20100710
  Serious: Yes (Hospitalization)
  Sender: FDA-Public Use
  Company Number: GXKR2010US02724

PATIENT
  Age: 70 Year
  Sex: Female

DRUGS (6)
  1. PACLITAXEL (NGX) [Suspect]
     Indication: BREAST CANCER STAGE II
     Dosage: UNK
     Route: 065
  2. DOXORUBICIN (NGX) [Suspect]
     Indication: BREAST CANCER STAGE II
     Route: 065
  3. CYCLOPHOSPHAMIDE [Suspect]
     Indication: BREAST CANCER STAGE II
     Route: 065
  4. RADIATION THERAPY [Suspect]
     Indication: BREAST CANCER STAGE II
     Route: 065
  5. LETROZOLE [Concomitant]
     Indication: BREAST CANCER STAGE II
  6. TAMOXIFEN CITRATE [Concomitant]
     Indication: BREAST CANCER STAGE II
     Route: 065

REACTIONS (1)
  - ACUTE MYELOMONOCYTIC LEUKAEMIA [None]
